FAERS Safety Report 25005326 (Version 1)
Quarter: 2025Q1

REPORT INFORMATION
  Report Type: Spontaneous
  Country: ZA (occurrence: ZA)
  Receive Date: 20250224
  Receipt Date: 20250224
  Transmission Date: 20250408
  Serious: Yes (Other)
  Sender: PFIZER
  Company Number: ZA-PFIZER INC-PV202300050770

PATIENT
  Age: 43 Year
  Sex: Female

DRUGS (6)
  1. SULFASALAZINE [Suspect]
     Active Substance: SULFASALAZINE
     Dosage: 1 G, 2X/DAY
     Dates: start: 20100218
  2. ARAVA [Suspect]
     Active Substance: LEFLUNOMIDE
     Dosage: 20 MG, DAILY
     Dates: start: 20150205
  3. CHLOROQUINE [Suspect]
     Active Substance: CHLOROQUINE
     Dates: start: 20140207
  4. METHOTREXATE [Concomitant]
     Active Substance: METHOTREXATE
     Dosage: 25 MG, WEEKLY
     Dates: start: 20120209, end: 202002
  5. HUMIRA [Concomitant]
     Active Substance: ADALIMUMAB
     Route: 057
     Dates: start: 201903, end: 202002
  6. XELJANZ [Concomitant]
     Active Substance: TOFACITINIB CITRATE
     Dosage: 50 MG, 2X/DAY

REACTIONS (2)
  - Foot operation [Unknown]
  - Condition aggravated [Unknown]
